FAERS Safety Report 17890452 (Version 1)
Quarter: 2020Q2

REPORT INFORMATION
  Report Type: Spontaneous
  Country: US (occurrence: US)
  Receive Date: 20200612
  Receipt Date: 20200612
  Transmission Date: 20200714
  Serious: No
  Sender: FDA-Public Use
  Company Number: US-PERRIGO-19US006040

PATIENT
  Sex: Female

DRUGS (2)
  1. AZELASTINE HYDROCHLORIDE. [Suspect]
     Active Substance: AZELASTINE HYDROCHLORIDE
     Dosage: UNK, SINGLE
     Route: 045
     Dates: start: 201905
  2. AZELASTINE HYDROCHLORIDE. [Suspect]
     Active Substance: AZELASTINE HYDROCHLORIDE
     Indication: PRODUCT USED FOR UNKNOWN INDICATION
     Dosage: UNK, UNK
     Route: 045
     Dates: start: 20190508

REACTIONS (4)
  - Dyspnoea [Unknown]
  - Sinusitis [Unknown]
  - Swelling face [Unknown]
  - Nasal congestion [Unknown]

NARRATIVE: CASE EVENT DATE: 201905
